FAERS Safety Report 16843199 (Version 1)
Quarter: 2019Q3

REPORT INFORMATION
  Report Type: Spontaneous
  Country: US (occurrence: US)
  Receive Date: 20190924
  Receipt Date: 20190924
  Transmission Date: 20191005
  Serious: No
  Sender: FDA-Public Use
  Company Number: US-ALLERGAN-1904539US

PATIENT
  Sex: Male

DRUGS (1)
  1. LEXAPRO [Suspect]
     Active Substance: ESCITALOPRAM OXALATE
     Indication: PRODUCT USED FOR UNKNOWN INDICATION
     Dosage: UNK
     Route: 065

REACTIONS (7)
  - Muscle spasms [Unknown]
  - Tachyphrenia [Unknown]
  - Musculoskeletal stiffness [Unknown]
  - Feeling jittery [Unknown]
  - Palpitations [Unknown]
  - Headache [Unknown]
  - Panic attack [Unknown]
